FAERS Safety Report 8397341-2 (Version None)
Quarter: 2012Q2

REPORT INFORMATION
  Report Type: 
  Country: None (occurrence: None)
  Receive Date: 20120531
  Receipt Date: 20120522
  Transmission Date: 20120825
  Serious: No
  Sender: FDA-Public Use
  Company Number: US-BIOGENIDEC-2012BI018095

PATIENT
  Sex: Male

DRUGS (4)
  1. AVONEX [Concomitant]
     Indication: MULTIPLE SCLEROSIS
     Route: 030
  2. TYSABRI [Suspect]
     Indication: MULTIPLE SCLEROSIS
     Route: 042
     Dates: start: 20080707, end: 20081202
  3. TYSABRI [Suspect]
     Route: 042
     Dates: start: 20110329
  4. TYSABRI [Suspect]
     Route: 042
     Dates: start: 20090514, end: 20100729

REACTIONS (1)
  - FATIGUE [None]
